FAERS Safety Report 5826159-7 (Version None)
Quarter: 2008Q3

REPORT INFORMATION
  Report Type: 
  Country: None (occurrence: None)
  Receive Date: 20080723
  Receipt Date: 20080711
  Transmission Date: 20090109
  Serious: No
  Sender: FDA-Public Use
  Company Number: 001752

PATIENT
  Age: 67 Year
  Sex: Male

DRUGS (11)
  1. PLETAL [Suspect]
     Indication: PERIPHERAL ARTERIAL OCCLUSIVE DISEASE
     Dosage: 100 MG, ORAL
     Route: 048
     Dates: start: 20080401
  2. RAMIPRIL [Concomitant]
  3. HYDROCHLOROTHIAZIDE [Concomitant]
  4. MOXONIDINE     (MOXONIDINE) [Concomitant]
  5. AMLODIPINE [Concomitant]
  6. CARVEDILOL [Concomitant]
  7. METFORMIN HCL [Concomitant]
  8. GLIMEPIRIDE [Concomitant]
  9. ACETYLSALICYLIC ACID SRT [Concomitant]
  10. CANDESARTAN CILEXETIL [Concomitant]
  11. LEVOTHYROXINE SODIUM [Concomitant]

REACTIONS (4)
  - CONDUCTION DISORDER [None]
  - DYSPNOEA [None]
  - PACEMAKER GENERATED ARRHYTHMIA [None]
  - TACHYCARDIA [None]
